FAERS Safety Report 4731859-6 (Version None)
Quarter: 2005Q3

REPORT INFORMATION
  Report Type: 
  Country: None (occurrence: None)
  Receive Date: 20050802
  Receipt Date: 20050802
  Transmission Date: 20060218
  Serious: Yes (Hospitalization)
  Sender: FDA-Public Use
  Company Number: None

PATIENT
  Age: 61 Year
  Sex: Male
  Weight: 61 kg

DRUGS (10)
  1. HEPARIN [Suspect]
     Indication: MITRAL VALVE DISEASE
     Dates: start: 20040828, end: 20040907
  2. TYLENOL (CAPLET) [Concomitant]
  3. ASPIRIN [Concomitant]
  4. FELODIPINE [Concomitant]
  5. FOSINOPRIL SODIUM [Concomitant]
  6. HYDRALAZINE [Concomitant]
  7. OMEPRAZOLE [Concomitant]
  8. OSOSORBIDE DINITRATE [Concomitant]
  9. TRAZODONE [Concomitant]
  10. SIMVASTATIN [Concomitant]

REACTIONS (2)
  - EPISTAXIS [None]
  - HAEMATOCRIT DECREASED [None]
